FAERS Safety Report 6806541-1 (Version None)
Quarter: 2010Q2

REPORT INFORMATION
  Report Type: 
  Country: None (occurrence: None)
  Receive Date: 20100629
  Receipt Date: 20080416
  Transmission Date: 20101027
  Serious: Yes (Hospitalization, Other)
  Sender: FDA-Public Use
  Company Number: US-PFIZER INC-2008015138

PATIENT
  Sex: Male
  Weight: 93 kg

DRUGS (1)
  1. VALDECOXIB [Suspect]
     Indication: SPONDYLITIS
     Dates: start: 20040601, end: 20050201

REACTIONS (2)
  - ANXIETY [None]
  - MYOCARDIAL INFARCTION [None]
